FAERS Safety Report 23665256 (Version 1)
Quarter: 2024Q1

REPORT INFORMATION
  Report Type: Report from Study
  Country: CA (occurrence: None)
  Receive Date: 20240322
  Receipt Date: 20240322
  Transmission Date: 20240410
  Serious: Yes (Hospitalization, Other)
  Sender: FDA-Public Use
  Company Number: 2024A063118

PATIENT
  Sex: Female

DRUGS (5)
  1. FASENRA [Suspect]
     Active Substance: BENRALIZUMAB
     Indication: Asthma
     Route: 058
     Dates: start: 20201210
  2. VENTOLIN [Concomitant]
     Active Substance: ALBUTEROL SULFATE
  3. PREDNISONE [Concomitant]
     Active Substance: PREDNISONE
  4. BREO ELLIPTA [Concomitant]
     Active Substance: FLUTICASONE FUROATE\VILANTEROL TRIFENATATE
  5. SPIRIVA [Concomitant]
     Active Substance: TIOTROPIUM BROMIDE MONOHYDRATE

REACTIONS (5)
  - Oropharyngeal candidiasis [Unknown]
  - COVID-19 [Unknown]
  - Mental disorder [Unknown]
  - Haemoptysis [Unknown]
  - Hypokinesia [Unknown]
